FAERS Safety Report 9452712 (Version 2)
Quarter: 2013Q3

REPORT INFORMATION
  Report Type: Report from Study
  Country: BR (occurrence: BR)
  Receive Date: 20130812
  Receipt Date: 20130823
  Transmission Date: 20140515
  Serious: Yes (Other)
  Sender: FDA-Public Use
  Company Number: PHHY2013BR084614

PATIENT
  Age: 55 Year
  Sex: Male

DRUGS (8)
  1. MYFORTIC [Suspect]
     Indication: RENAL TRANSPLANT
     Dosage: UNK UKN, UNK
  2. MYFORTIC [Suspect]
     Dosage: 720 MG, ONCE/SINGLE
  3. CERTICAN [Suspect]
     Indication: RENAL TRANSPLANT
     Dosage: 4 MG, ONCE/SINGLE
  4. PREDNISONE [Concomitant]
     Indication: RENAL TRANSPLANT
     Dosage: UNK UKN, UNK
  5. PREDNISONE [Concomitant]
     Dosage: 30 MG, ONCE/SINGLE
  6. THYMOGLOBULIN [Concomitant]
  7. TACROLIMUS [Concomitant]
     Indication: RENAL TRANSPLANT
     Dosage: UNK UKN, UNK
  8. TACROLIMUS [Concomitant]
     Dosage: UNK

REACTIONS (23)
  - Interstitial granulomatous dermatitis [Recovering/Resolving]
  - Thrombosis [Unknown]
  - Skin lesion [Recovered/Resolved]
  - Erythema [Unknown]
  - Blister [Unknown]
  - Scab [Unknown]
  - Rash [Unknown]
  - Pyrexia [Unknown]
  - Skin exfoliation [Unknown]
  - Cytomegalovirus infection [Unknown]
  - Decreased appetite [Unknown]
  - Weight decreased [Unknown]
  - Oral disorder [Unknown]
  - Leukopenia [Unknown]
  - Pneumocystis jirovecii pneumonia [Unknown]
  - Cough [Unknown]
  - Dyspnoea [Unknown]
  - Blastocystis infection [Unknown]
  - Diarrhoea [Unknown]
  - Toxoplasmosis [Unknown]
  - Urinary tract infection [Unknown]
  - Human polyomavirus infection [Unknown]
  - Renal failure acute [Unknown]
